FAERS Safety Report 25476509 (Version 8)
Quarter: 2025Q4

REPORT INFORMATION
  Report Type: Report from Study
  Country: EU (occurrence: EU)
  Receive Date: 20250625
  Receipt Date: 20251216
  Transmission Date: 20260117
  Serious: Yes (Hospitalization, Other)
  Sender: BRISTOL-MYERS SQUIBB COMPANY
  Company Number: EU-IPSEN Group, Research and Development-2025-06298

PATIENT
  Age: 81 Year
  Sex: Male
  Weight: 56 kg

DRUGS (12)
  1. NIVOLUMAB [Suspect]
     Active Substance: NIVOLUMAB
     Indication: Renal cell carcinoma
  2. NIVOLUMAB [Suspect]
     Active Substance: NIVOLUMAB
  3. NIVOLUMAB [Suspect]
     Active Substance: NIVOLUMAB
  4. NIVOLUMAB [Suspect]
     Active Substance: NIVOLUMAB
  5. NIVOLUMAB [Suspect]
     Active Substance: NIVOLUMAB
  6. CABOZANTINIB [Suspect]
     Active Substance: CABOZANTINIB
     Indication: Renal cell carcinoma
     Dosage: MORNING
     Dates: start: 20250211, end: 20250519
  7. CABOZANTINIB [Suspect]
     Active Substance: CABOZANTINIB
     Dosage: MORNING
     Dates: start: 20250722, end: 20250810
  8. BISOPROLOL [Concomitant]
     Active Substance: BISOPROLOL
     Indication: Hypertension
     Dates: start: 20241203
  9. METFORMIN [Concomitant]
     Active Substance: METFORMIN HYDROCHLORIDE
     Indication: Type 2 diabetes mellitus
     Dates: start: 20241203
  10. AMLODIPINE BESYLATE [Concomitant]
     Active Substance: AMLODIPINE BESYLATE
     Indication: Hypertension
     Dates: start: 20241216
  11. AMOXICILLIN\CLAVULANATE POTASSIUM [Concomitant]
     Active Substance: AMOXICILLIN\CLAVULANATE POTASSIUM
     Indication: Bacterial infection
     Dosage: 875/125 MG
     Route: 048
     Dates: start: 20250429, end: 20250503
  12. LEVOTHYROXINE SODIUM [Concomitant]
     Active Substance: LEVOTHYROXINE SODIUM
     Indication: Hypothyroidism

REACTIONS (15)
  - Immune-mediated thyroiditis [Recovered/Resolved]
  - Immune-mediated encephalopathy [Recovered/Resolved]
  - Hypothyroidism [Recovered/Resolved]
  - Clostridium colitis [Recovered/Resolved]
  - Thrombosis [Recovering/Resolving]
  - Hyperthyroidism [Recovered/Resolved]
  - Dehydration [Recovered/Resolved]
  - Immune-mediated cholestasis [Not Recovered/Not Resolved]
  - General physical health deterioration [Not Recovered/Not Resolved]
  - Hypertension [Not Recovered/Not Resolved]
  - Fall [Recovered/Resolved]
  - Decreased appetite [Unknown]
  - Liver disorder [Unknown]
  - Hyponatraemia [Recovered/Resolved]
  - Condition aggravated [Recovered/Resolved]

NARRATIVE: CASE EVENT DATE: 20250310
